FAERS Safety Report 18827268 (Version 1)
Quarter: 2021Q1

REPORT INFORMATION
  Report Type: Other
  Country: US (occurrence: US)
  Receive Date: 20210202
  Receipt Date: 20210202
  Transmission Date: 20210419
  Serious: Yes (Hospitalization)
  Sender: FDA-Public Use
  Company Number: US-B.BRAUN MEDICAL INC.-2106209

PATIENT
  Age: 39 Year
  Sex: Male

DRUGS (3)
  1. PREDNISONE. [Concomitant]
     Active Substance: PREDNISONE
  2. HEPARIN SODIUM IN DEXTROSE [Suspect]
     Active Substance: HEPARIN SODIUM
     Indication: ANTICOAGULATION DRUG LEVEL BELOW THERAPEUTIC
     Route: 042
  3. FLUCONAZOLE. [Suspect]
     Active Substance: FLUCONAZOLE

REACTIONS (1)
  - Hyperkalaemia [Recovered/Resolved]
